FAERS Safety Report 15429358 (Version 1)
Quarter: 2018Q3

REPORT INFORMATION
  Report Type: Spontaneous
  Country: IN (occurrence: IN)
  Receive Date: 20180926
  Receipt Date: 20180926
  Transmission Date: 20181010
  Serious: Yes (Death, Hospitalization)
  Sender: FDA-Public Use
  Company Number: IN-MYLANLABS-2018M1068504

PATIENT
  Age: 30 Year
  Sex: Female

DRUGS (4)
  1. COLISTIN [Suspect]
     Active Substance: COLISTIN
     Indication: POSTOPERATIVE CARE
     Dosage: 1 MILLION UNITS, THRICE DAILY
     Route: 042
  2. CEFOPERAZONE + SULBACTAM [Suspect]
     Active Substance: CEFOPERAZONE SODIUM\SULBACTAM
     Indication: POSTOPERATIVE CARE
     Dosage: 2 G, UNK
     Route: 042
  3. LEVOFLOXACIN. [Suspect]
     Active Substance: LEVOFLOXACIN
     Indication: POSTOPERATIVE CARE
     Dosage: 750 G, QD
     Route: 042
  4. MEROPENEM. [Suspect]
     Active Substance: MEROPENEM
     Indication: POSTOPERATIVE CARE
     Dosage: 1 G, THRICE DAILY
     Route: 042

REACTIONS (3)
  - Bacteraemia [Fatal]
  - Septic shock [Fatal]
  - Cardiac arrest [Fatal]
